FAERS Safety Report 12741926 (Version 3)
Quarter: 2016Q4

REPORT INFORMATION
  Report Type: Spontaneous
  Country: US (occurrence: US)
  Receive Date: 20160914
  Receipt Date: 20161226
  Transmission Date: 20170207
  Serious: No
  Sender: FDA-Public Use
  Company Number: US-ASTRAZENECA-2016SE65725

PATIENT
  Age: 22923 Day
  Sex: Female
  Weight: 48.2 kg

DRUGS (15)
  1. MULTIVITAMIN [Concomitant]
     Active Substance: VITAMINS
  2. IRON [Concomitant]
     Active Substance: IRON
  3. VENTOLIN HFA [Concomitant]
     Active Substance: ALBUTEROL SULFATE
     Indication: EMPHYSEMA
  4. FERROUS SULFATE. [Suspect]
     Active Substance: FERROUS SULFATE
     Indication: MUSCLE SPASMS
     Dosage: 325.0MG UNKNOWN
     Route: 048
  5. OTHER VITAMINS [Concomitant]
     Active Substance: VITAMINS
  6. CALCIUM [Concomitant]
     Active Substance: CALCIUM
     Indication: OSTEOPOROSIS
     Route: 048
  7. ALENDRONATE SODIUM. [Concomitant]
     Active Substance: ALENDRONATE SODIUM
     Indication: OSTEOPOROSIS
     Dosage: ONCE A WEEK
     Route: 048
  8. FERROUS SULFATE. [Suspect]
     Active Substance: FERROUS SULFATE
     Indication: ANAEMIA
     Dosage: 325.0MG UNKNOWN
     Route: 048
  9. FLOVENT HFA [Concomitant]
     Active Substance: FLUTICASONE PROPIONATE
     Indication: CHRONIC OBSTRUCTIVE PULMONARY DISEASE
     Dosage: 1 PUFF TWICE DAILY
     Route: 055
  10. CENTRUM SILVER [Concomitant]
     Active Substance: MINERALS\VITAMINS
     Indication: SUPPLEMENTATION THERAPY
     Dosage: DAILY
     Route: 048
  11. METOPROLOL SUCCINATE. [Suspect]
     Active Substance: METOPROLOL SUCCINATE
     Indication: BLOOD PRESSURE ABNORMAL
     Dosage: GENERIC , 25 MG, DAILY
     Route: 048
  12. METOPROLOL SUCCINATE. [Suspect]
     Active Substance: METOPROLOL SUCCINATE
     Indication: HYPERTENSION
     Dosage: GENERIC , 25 MG, DAILY
     Route: 048
  13. TYLENOL OTC [Concomitant]
     Indication: BACK PAIN
     Route: 048
  14. TUDORZA PRESSAIR [Suspect]
     Active Substance: ACLIDINIUM BROMIDE
     Indication: EMPHYSEMA
     Dosage: 400 UG, 1 PUFF TWICE A DAY
     Route: 055
     Dates: start: 20160510, end: 20160710
  15. FLOVENT HFA [Concomitant]
     Active Substance: FLUTICASONE PROPIONATE
     Indication: EMPHYSEMA
     Dosage: 1 PUFF TWICE DAILY
     Route: 055

REACTIONS (9)
  - Faeces discoloured [Unknown]
  - Dyspnoea [Recovered/Resolved]
  - Dysphonia [Unknown]
  - Oropharyngeal pain [Recovered/Resolved]
  - Product quality issue [Unknown]
  - Pain threshold decreased [Unknown]
  - Drug dose omission [Unknown]
  - Weight increased [Not Recovered/Not Resolved]
  - Diarrhoea [Recovered/Resolved]

NARRATIVE: CASE EVENT DATE: 20160512
